FAERS Safety Report 7775393-8 (Version None)
Quarter: 2011Q3

REPORT INFORMATION
  Report Type: 
  Country: None (occurrence: None)
  Receive Date: 20110923
  Receipt Date: 20110914
  Transmission Date: 20111222
  Serious: Yes (Hospitalization, Other)
  Sender: FDA-Public Use
  Company Number: PHHY2011US24053

PATIENT
  Age: 56 Year
  Sex: Male
  Weight: 76 kg

DRUGS (16)
  1. AZITHROMYCIN [Concomitant]
  2. CALCIUM CARBONATE [Concomitant]
  3. ADVAIR DISKUS 100/50 [Concomitant]
  4. PANCREASE [Concomitant]
  5. ANDROGEL [Concomitant]
  6. PAROXETINE HYDROCHLORIDE [Concomitant]
  7. TOBI [Suspect]
     Indication: CYSTIC FIBROSIS
     Dosage: 300 MG, BID VIA NEBULIZER IN A CYCLE OF 28 DAYS ON AND 28 DAYS OFF
     Dates: start: 20100427
  8. HYPE- SAL [Concomitant]
     Dosage: NEBULISATION, DAILY
  9. VITAMIN B-12 [Concomitant]
  10. BENICAR [Concomitant]
  11. ASPIRIN [Concomitant]
     Dosage: PRN
  12. AZTREONAM [Concomitant]
     Dosage: 75 MG, TID
  13. CARDIZEM [Concomitant]
  14. VITAMIN D [Concomitant]
  15. ALBUTEROL [Concomitant]
  16. PULMOZYME [Concomitant]
     Dosage: 2.5 MG, DAILY

REACTIONS (5)
  - PNEUMONIA [None]
  - INFECTIVE PULMONARY EXACERBATION OF CYSTIC FIBROSIS [None]
  - LUNG INFECTION [None]
  - UPPER RESPIRATORY TRACT INFECTION [None]
  - EAR INFECTION [None]
